FAERS Safety Report 9575078 (Version 2)
Quarter: 2019Q2

REPORT INFORMATION
  Report Type: Spontaneous
  Country: GB (occurrence: GB)
  Receive Date: 20131001
  Receipt Date: 20190616
  Transmission Date: 20190711
  Serious: Yes (Hospitalization)
  Sender: FDA-Public Use
  Company Number: PHHY2013GB106193

PATIENT
  Age: 75 Year
  Sex: Male

DRUGS (7)
  1. ADENURIC [Suspect]
     Active Substance: FEBUXOSTAT
     Indication: URATE NEPHROPATHY
     Dosage: UNK
     Route: 048
     Dates: start: 20120903, end: 20121014
  2. ATORVASTATIN [Concomitant]
     Active Substance: ATORVASTATIN
     Indication: HYPERLIPIDAEMIA
     Dosage: 40 MG, UNK
     Route: 048
     Dates: end: 20121218
  3. MAXITROL [Concomitant]
     Active Substance: DEXAMETHASONE\NEOMYCIN SULFATE\POLYMYXIN B SULFATE
     Indication: PRODUCT USED FOR UNKNOWN INDICATION
     Dosage: UNK
     Route: 065
  4. COLCHICINE. [Concomitant]
     Active Substance: COLCHICINE
     Indication: PRODUCT USED FOR UNKNOWN INDICATION
     Dosage: 500 UG, UNK
     Route: 065
  5. PIOGLITAZONE. [Suspect]
     Active Substance: PIOGLITAZONE
     Indication: DIABETES MELLITUS
     Dosage: UNK
     Route: 065
     Dates: end: 20121218
  6. ARANESP [Concomitant]
     Active Substance: DARBEPOETIN ALFA
     Indication: DIABETES MELLITUS
     Dosage: UNK, 60 MICROGRAMS/0.3ML
     Route: 065
  7. FUROSEMIDE. [Concomitant]
     Active Substance: FUROSEMIDE
     Indication: PRODUCT USED FOR UNKNOWN INDICATION
     Dosage: 40 MG, UNK
     Route: 065

REACTIONS (4)
  - Liver disorder [Recovering/Resolving]
  - Jaundice cholestatic [Recovering/Resolving]
  - Oedema peripheral [Recovering/Resolving]
  - Dyspnoea [Recovering/Resolving]

NARRATIVE: CASE EVENT DATE: 20121113
